FAERS Safety Report 13851130 (Version 1)
Quarter: 2017Q3

REPORT INFORMATION
  Report Type: Spontaneous
  Country: US (occurrence: US)
  Receive Date: 20170810
  Receipt Date: 20170810
  Transmission Date: 20171127
  Serious: No
  Sender: FDA-Public Use
  Company Number: US-TEVA-794251ACC

PATIENT
  Age: 36 Year
  Sex: Male

DRUGS (7)
  1. VITAMIN D [Concomitant]
     Active Substance: CHOLECALCIFEROL
  2. IBUPROFEN(MOTRIN) [Concomitant]
  3. METFORMIN(GLUCOPHAGE) [Concomitant]
  4. COPAXONE [Suspect]
     Active Substance: GLATIRAMER ACETATE
     Indication: MULTIPLE SCLEROSIS
     Dosage: PFS
     Route: 058
     Dates: start: 20160706
  5. LISINOPRIL/HYDROCHLOROTHIAZIDE(PRINZIDE) [Concomitant]
  6. SIMVASTATIN(ZOCOR) [Concomitant]
  7. ASPIRIN. [Concomitant]
     Active Substance: ASPIRIN

REACTIONS (1)
  - Heart rate increased [Unknown]

NARRATIVE: CASE EVENT DATE: 201707
